FAERS Safety Report 6655905-8 (Version None)
Quarter: 2010Q1

REPORT INFORMATION
  Report Type: 
  Country: None (occurrence: None)
  Receive Date: 20100329
  Receipt Date: 20100317
  Transmission Date: 20100710
  Serious: Yes (Other)
  Sender: FDA-Public Use
  Company Number: PHHY2010CL08001

PATIENT
  Age: 13 Year
  Sex: Male

DRUGS (5)
  1. EXJADE [Suspect]
     Indication: APLASIA
     Dosage: 5.2 MG/KG/DAY
     Dates: start: 20090320, end: 20090814
  2. EXJADE [Suspect]
     Indication: HAEMOSIDEROSIS
  3. CYCLOSPORINE [Concomitant]
     Dosage: 1.2 ML, Q12H
  4. ENALAPRIL MALEATE [Concomitant]
     Dosage: 1/2 COMP/DAY VO
  5. ATENOLOL [Concomitant]
     Dosage: 25 MG, Q12H

REACTIONS (8)
  - BLOOD CREATININE INCREASED [None]
  - BLOOD TEST ABNORMAL [None]
  - DYSPNOEA [None]
  - ECCHYMOSIS [None]
  - EPISTAXIS [None]
  - FATIGUE [None]
  - RENAL IMPAIRMENT [None]
  - SPINAL MYELOGRAM ABNORMAL [None]
